FAERS Safety Report 16127257 (Version 1)
Quarter: 2019Q1

REPORT INFORMATION
  Report Type: Spontaneous
  Country: JP (occurrence: JP)
  Receive Date: 20190328
  Receipt Date: 20190328
  Transmission Date: 20190418
  Serious: Yes (Other)
  Sender: FDA-Public Use
  Company Number: PHJP2019JP003583

PATIENT
  Age: 41 Year
  Sex: Male

DRUGS (1)
  1. TASIGNA [Suspect]
     Active Substance: NILOTINIB
     Indication: CHRONIC MYELOID LEUKAEMIA
     Dosage: UNK
     Route: 048

REACTIONS (4)
  - Eye pain [Unknown]
  - Corneal disorder [Unknown]
  - Punctate keratitis [Recovering/Resolving]
  - Dry eye [Unknown]
